FAERS Safety Report 6201112-2 (Version None)
Quarter: 2009Q2

REPORT INFORMATION
  Report Type: 
  Country: None (occurrence: None)
  Receive Date: 20090526
  Receipt Date: 20090514
  Transmission Date: 20091009
  Serious: Yes (Death)
  Sender: FDA-Public Use
  Company Number: CH-BAYER-200920798GPV

PATIENT
  Age: 62 Year
  Sex: Male

DRUGS (5)
  1. CIPROFLOXACIN [Suspect]
     Indication: LARGE INTESTINE PERFORATION
     Dosage: UNIT DOSE: 500 MG
     Route: 048
     Dates: start: 20090320, end: 20090410
  2. ALLOPURINOL [Concomitant]
     Indication: GOUT
     Dosage: UNIT DOSE: 150 MG
     Route: 048
  3. OMEPRAZOLE [Concomitant]
     Indication: GASTROOESOPHAGEAL REFLUX DISEASE
     Dosage: UNIT DOSE: 20 MG
     Route: 048
  4. NULYTELY [Concomitant]
     Indication: CONSTIPATION
     Route: 048
  5. AUGMENTIN '125' [Concomitant]
     Indication: DIVERTICULITIS
     Route: 065
     Dates: start: 20090203

REACTIONS (2)
  - CARDIAC ARREST [None]
  - VENTRICULAR FIBRILLATION [None]
